FAERS Safety Report 18066794 (Version 1)
Quarter: 2020Q3

REPORT INFORMATION
  Report Type: Spontaneous
  Country: DE (occurrence: DE)
  Receive Date: 20200724
  Receipt Date: 20200724
  Transmission Date: 20201103
  Serious: Yes (Hospitalization, Other)
  Sender: FDA-Public Use
  Company Number: DE-SHIRE-DE202023336

PATIENT

DRUGS (5)
  1. RUCONEST [Suspect]
     Active Substance: HUMAN C1-ESTERASE INHIBITOR
     Dosage: 4200 INTERNATIONAL UNIT EVERY 3 DAYS
     Route: 065
  2. RUCONEST [Suspect]
     Active Substance: HUMAN C1-ESTERASE INHIBITOR
     Dosage: UNK, AS REQ^D
     Route: 065
     Dates: start: 201909
  3. TAKHZYRO [Suspect]
     Active Substance: LANADELUMAB-FLYO
     Indication: HEREDITARY ANGIOEDEMA
     Dosage: UNK, 1X/2WKS
     Route: 058
     Dates: start: 201909
  4. RUCONEST [Suspect]
     Active Substance: HUMAN C1-ESTERASE INHIBITOR
     Indication: HEREDITARY ANGIOEDEMA
     Dosage: 4200 IU, 3?4 TIMES WEEKLY PRECAUTIONARY
     Route: 042
  5. RUCONEST [Suspect]
     Active Substance: HUMAN C1-ESTERASE INHIBITOR
     Dosage: UNK, 1X/DAY:QD
     Route: 065
     Dates: start: 201907, end: 201908

REACTIONS (3)
  - Intentional product use issue [Recovered/Resolved]
  - Basal cell carcinoma [Recovered/Resolved]
  - Product use in unapproved indication [Recovered/Resolved]
